FAERS Safety Report 13948902 (Version 4)
Quarter: 2018Q3

REPORT INFORMATION
  Report Type: Spontaneous
  Country: CA (occurrence: CA)
  Receive Date: 20170908
  Receipt Date: 20180709
  Transmission Date: 20181010
  Serious: Yes (Other)
  Sender: FDA-Public Use
  Company Number: CA-PFIZER INC-2017089896

PATIENT
  Age: 64 Year
  Sex: Female

DRUGS (5)
  1. TETRACYCLINE [Concomitant]
     Active Substance: TETRACYCLINE
     Indication: GASTRIC ULCER
     Dosage: 500 MG, 4X/DAY DURING 10 DAYS
     Route: 048
     Dates: start: 2017
  2. LYRICA [Concomitant]
     Active Substance: PREGABALIN
     Indication: RHEUMATOID ARTHRITIS
     Dosage: 75 MG, DAILY
  3. XELJANZ [Suspect]
     Active Substance: TOFACITINIB CITRATE
     Indication: RHEUMATOID ARTHRITIS
     Dosage: 5 MG, TWICE DAILY
     Route: 048
     Dates: start: 20170226, end: 20171128
  4. FLAGYL [Concomitant]
     Active Substance: METRONIDAZOLE\METRONIDAZOLE HYDROCHLORIDE
     Indication: GASTRIC ULCER
     Dosage: 250 MG, 4X/DAY DURING 10 DAYS
     Dates: start: 2017
  5. METHOTREXATE. [Concomitant]
     Active Substance: METHOTREXATE
     Indication: RHEUMATOID ARTHRITIS
     Dosage: 20 MG, WEEKLY
     Route: 048

REACTIONS (6)
  - Fatigue [Unknown]
  - Crying [Unknown]
  - Weight increased [Unknown]
  - Blood iron decreased [Unknown]
  - Gastric ulcer [Unknown]
  - Diarrhoea [Not Recovered/Not Resolved]

NARRATIVE: CASE EVENT DATE: 2017
